FAERS Safety Report 6401807-1 (Version None)
Quarter: 2009Q4

REPORT INFORMATION
  Report Type: 
  Country: None (occurrence: None)
  Receive Date: 20091015
  Receipt Date: 20091006
  Transmission Date: 20100525
  Serious: Yes (Other)
  Sender: FDA-Public Use
  Company Number: GB-ASTRAZENECA-2009SE18153

PATIENT
  Age: 23 Year
  Sex: Female

DRUGS (19)
  1. QUETIAPINE [Suspect]
     Indication: BIPOLAR DISORDER
  2. QUETIAPINE [Suspect]
     Indication: HYPOMANIA
  3. QUETIAPINE [Suspect]
  4. QUETIAPINE [Suspect]
  5. DEPAKENE [Suspect]
     Indication: BIPOLAR DISORDER
     Dates: start: 20070101, end: 20080101
  6. DEPAKENE [Suspect]
     Indication: HYPOMANIA
     Dates: start: 20070101, end: 20080101
  7. RISPERDAL [Suspect]
     Indication: BIPOLAR DISORDER
     Dates: start: 20070101, end: 20070101
  8. RISPERDAL [Suspect]
     Indication: HYPOMANIA
     Dates: start: 20070101, end: 20070101
  9. ALPRAZOLAM [Concomitant]
  10. BIPERIDEN HYDROCHLORIDE TAB [Concomitant]
  11. CLONAZEPAM [Concomitant]
  12. HALOPERIDOL [Concomitant]
  13. PAROXETINE [Concomitant]
  14. PROMETHAZINE [Concomitant]
  15. RISPERIDONE [Concomitant]
  16. SULPIRIDE [Concomitant]
  17. VALPROATE ION [Concomitant]
  18. ZOPICLONE [Concomitant]
  19. ZUCLOPENTHIXOL [Concomitant]

REACTIONS (4)
  - DRUG LEVEL ABOVE THERAPEUTIC [None]
  - GALACTORRHOEA [None]
  - TARDIVE DYSKINESIA [None]
  - WEIGHT INCREASED [None]
